FAERS Safety Report 14989746 (Version 1)
Quarter: 2018Q2

REPORT INFORMATION
  Report Type: Spontaneous
  Country: US (occurrence: US)
  Receive Date: 20180516
  Receipt Date: 20180516
  Transmission Date: 20180711
  Serious: Yes (Hospitalization)
  Sender: FDA-Public Use
  Company Number: None

PATIENT
  Age: 45 Year
  Sex: Male

DRUGS (22)
  1. LISINOPRIL AND HYDROCHLOROTHIAZIDE [Concomitant]
     Active Substance: HYDROCHLOROTHIAZIDE\LISINOPRIL
  2. ENTRESTO [Concomitant]
     Active Substance: SACUBITRIL\VALSARTAN
  3. ASPIRIN. [Concomitant]
     Active Substance: ASPIRIN
  4. MODAFINIL. [Concomitant]
     Active Substance: MODAFINIL
  5. FLUTICASONE. [Concomitant]
     Active Substance: FLUTICASONE
  6. PROVENTIL [Concomitant]
     Active Substance: ALBUTEROL
  7. TALTZ [Suspect]
     Active Substance: IXEKIZUMAB
     Indication: PSORIASIS
     Dosage: ?          OTHER ROUTE:BY DOCTOR?
  8. ATORVASTATIN [Concomitant]
     Active Substance: ATORVASTATIN
  9. NAPROXEN. [Concomitant]
     Active Substance: NAPROXEN
  10. SMZ/TMP DS [Concomitant]
     Active Substance: SULFAMETHOXAZOLE\TRIMETHOPRIM
  11. MUPIROCIN. [Concomitant]
     Active Substance: MUPIROCIN
  12. VANOS [Concomitant]
     Active Substance: FLUOCINONIDE
  13. METRONIDAZOL [Concomitant]
     Active Substance: METRONIDAZOLE
  14. CYCLOBENZAPR [Concomitant]
     Active Substance: CYCLOBENZAPRINE
  15. AMOXICILLIN. [Concomitant]
     Active Substance: AMOXICILLIN
  16. SPIRONOLACT [Concomitant]
     Active Substance: SPIRONOLACTONE
  17. OXYCODONE AND ACETAMINOPHEN [Concomitant]
     Active Substance: ACETAMINOPHEN\OXYCODONE HYDROCHLORIDE
  18. METFORMIN [Concomitant]
     Active Substance: METFORMIN HYDROCHLORIDE
  19. CARVEDILOL. [Concomitant]
     Active Substance: CARVEDILOL
  20. FUROSEMIDE. [Concomitant]
     Active Substance: FUROSEMIDE
  21. AZITHROMYCIN ANHYDROUS. [Concomitant]
     Active Substance: AZITHROMYCIN ANHYDROUS
  22. BETAMETH [Concomitant]

REACTIONS (1)
  - Myocardial infarction [None]

NARRATIVE: CASE EVENT DATE: 201804
